FAERS Safety Report 14639615 (Version 1)
Quarter: 2018Q1

REPORT INFORMATION
  Report Type: Spontaneous
  Country: US (occurrence: US)
  Receive Date: 20180315
  Receipt Date: 20180315
  Transmission Date: 20180509
  Serious: Yes (Hospitalization, Other)
  Sender: FDA-Public Use
  Company Number: US-ROCHE-2088516

PATIENT
  Age: 57 Year
  Sex: Male
  Weight: 93.07 kg

DRUGS (2)
  1. KLONOPIN [Suspect]
     Active Substance: CLONAZEPAM
     Route: 048
     Dates: start: 199001, end: 1990
  2. KLONOPIN [Suspect]
     Active Substance: CLONAZEPAM
     Indication: PRODUCT USED FOR UNKNOWN INDICATION
     Dosage: DOSE INCREASED ;ONGOING: YES
     Route: 048
     Dates: start: 1990

REACTIONS (15)
  - Feeling abnormal [Recovered/Resolved]
  - Suicide attempt [Unknown]
  - Psychotic disorder [Not Recovered/Not Resolved]
  - Drug ineffective [Unknown]
  - Psychomotor hyperactivity [Not Recovered/Not Resolved]
  - Abnormal behaviour [Recovered/Resolved]
  - Dysgeusia [Not Recovered/Not Resolved]
  - Product physical issue [Unknown]
  - Schizophrenia [Not Recovered/Not Resolved]
  - Aphonia [Recovered/Resolved]
  - Anxiety [Not Recovered/Not Resolved]
  - Psychiatric symptom [Recovered/Resolved]
  - Suicidal behaviour [Recovered/Resolved]
  - Paranoia [Not Recovered/Not Resolved]
  - Expired product administered [Unknown]

NARRATIVE: CASE EVENT DATE: 1990
